FAERS Safety Report 6884497-3 (Version None)
Quarter: 2010Q3

REPORT INFORMATION
  Report Type: 
  Country: None (occurrence: None)
  Receive Date: 20100729
  Receipt Date: 20070712
  Transmission Date: 20110219
  Serious: Yes (Hospitalization)
  Sender: FDA-Public Use
  Company Number: US-PFIZER INC-2007058394

PATIENT
  Sex: Male
  Weight: 104.3 kg

DRUGS (1)
  1. CELEBREX [Suspect]
     Indication: NECK INJURY
     Dates: start: 20031001, end: 20041001

REACTIONS (2)
  - CARDIAC FAILURE CONGESTIVE [None]
  - MYOCARDIAL INFARCTION [None]
